FAERS Safety Report 8185077-2 (Version None)
Quarter: 2012Q1

REPORT INFORMATION
  Report Type: 
  Country: None (occurrence: None)
  Receive Date: 20120305
  Receipt Date: 20120229
  Transmission Date: 20120608
  Serious: Yes (Disabling)
  Sender: FDA-Public Use
  Company Number: US-PFIZER INC-2012054446

PATIENT
  Sex: Female
  Weight: 99.773 kg

DRUGS (3)
  1. LYRICA [Concomitant]
     Dosage: UNK
  2. XANAX [Concomitant]
     Indication: ANXIETY
     Dosage: UNK
  3. PREMARIN [Suspect]
     Indication: HORMONE REPLACEMENT THERAPY
     Dosage: 0.625 MG, 1X/DAY
     Route: 048

REACTIONS (1)
  - FIBROMYALGIA [None]
